FAERS Safety Report 22347484 (Version 3)
Quarter: 2023Q2

REPORT INFORMATION
  Report Type: Spontaneous
  Country: US (occurrence: None)
  Receive Date: 20230521
  Receipt Date: 20230605
  Transmission Date: 20230722
  Serious: Yes (Death)
  Sender: FDA-Public Use
  Company Number: US-ROCHE-3352863

PATIENT
  Age: 82 Year
  Sex: Female

DRUGS (2)
  1. AVASTIN [Suspect]
     Active Substance: BEVACIZUMAB
     Indication: Neovascular age-related macular degeneration
     Route: 050
     Dates: start: 20210323, end: 20230510
  2. AVASTIN [Suspect]
     Active Substance: BEVACIZUMAB
     Indication: Choroidal neovascularisation

REACTIONS (2)
  - Brain hypoxia [Fatal]
  - Off label use [Unknown]

NARRATIVE: CASE EVENT DATE: 20230512
